FAERS Safety Report 4684630-8 (Version None)
Quarter: 2005Q2

REPORT INFORMATION
  Report Type: 
  Country: None (occurrence: None)
  Receive Date: 20050603
  Receipt Date: 20050526
  Transmission Date: 20051028
  Serious: Yes (Other)
  Sender: FDA-Public Use
  Company Number: 2005-05-1772

PATIENT
  Age: 22 Year
  Sex: Male

DRUGS (3)
  1. NASONEX [Suspect]
     Dosage: NASAL SPRAY
  2. CLARITYNE (LORATADINE) TABLETS ORAL [Concomitant]
     Dosage: NNASAL SPRAY
  3. CLARITIN [Concomitant]

REACTIONS (2)
  - BRONCHOPULMONARY ASPERGILLOSIS [None]
  - MYCOBACTERIAL INFECTION [None]
